FAERS Safety Report 8278513-4 (Version None)
Quarter: 2012Q2

REPORT INFORMATION
  Report Type: 
  Country: None (occurrence: None)
  Receive Date: 20120412
  Receipt Date: 20110331
  Transmission Date: 20120825
  Serious: No
  Sender: FDA-Public Use
  Company Number: US-ASTRAZENECA-2011SE18512

PATIENT
  Age: 68 Year
  Sex: Male

DRUGS (7)
  1. LISINOPRIL [Concomitant]
     Indication: HYPERTENSION
  2. GLYBURIDE [Concomitant]
     Indication: DIABETES MELLITUS
  3. TYLENOL (CAPLET) [Concomitant]
  4. PRAVASTATIN [Concomitant]
     Indication: BLOOD CHOLESTEROL
  5. NEXIUM [Suspect]
     Route: 048
     Dates: start: 20110101, end: 20110131
  6. NEXIUM [Suspect]
     Route: 048
     Dates: start: 20110301, end: 20110331
  7. NEXIUM [Suspect]
     Route: 048
     Dates: start: 20110201, end: 20110228

REACTIONS (2)
  - SERUM SEROTONIN INCREASED [None]
  - BLOOD CHROMOGRANIN A INCREASED [None]
